FAERS Safety Report 17543917 (Version 2)
Quarter: 2020Q2

REPORT INFORMATION
  Report Type: Spontaneous
  Country: GR (occurrence: GR)
  Receive Date: 20200316
  Receipt Date: 20200417
  Transmission Date: 20200713
  Serious: Yes (Other)
  Sender: FDA-Public Use
  Company Number: NVSC2020GR072103

PATIENT
  Age: 73 Year
  Sex: Male

DRUGS (3)
  1. CYMBALTA [Concomitant]
     Active Substance: DULOXETINE HYDROCHLORIDE
     Indication: VESTIBULAR DISORDER
     Dosage: 2 TIMES A WEEK
     Route: 065
  2. TEGRETOL [Suspect]
     Active Substance: CARBAMAZEPINE
     Indication: VESTIBULAR DISORDER
     Dosage: 200 MG, BID, (ONE IN THE MORNING AND AND ONE AT NIGHT)
     Route: 065
     Dates: start: 20191206
  3. TEGRETOL [Suspect]
     Active Substance: CARBAMAZEPINE
     Dosage: 200 MG, QHS
     Route: 065

REACTIONS (2)
  - Product use in unapproved indication [Unknown]
  - Nightmare [Recovering/Resolving]

NARRATIVE: CASE EVENT DATE: 20191206
